FAERS Safety Report 5709449-8 (Version None)
Quarter: 2008Q2

REPORT INFORMATION
  Report Type: 
  Country: None (occurrence: None)
  Receive Date: 20080418
  Receipt Date: 20080407
  Transmission Date: 20081010
  Serious: Yes (Death)
  Sender: FDA-Public Use
  Company Number: FR-JNJFOC-20080403191

PATIENT
  Sex: Female

DRUGS (6)
  1. ULTRACET [Suspect]
     Indication: PAIN
     Route: 048
  2. CHIROCAINE [Suspect]
     Indication: ANAESTHESIA
     Route: 050
  3. FIXICAL [Concomitant]
     Route: 048
  4. STRUCTUM [Concomitant]
     Route: 048
  5. MYOLASTAN [Concomitant]
     Route: 048
  6. PARACETAMOL [Concomitant]
     Route: 065

REACTIONS (3)
  - CARDIAC ARREST [None]
  - NO THERAPEUTIC RESPONSE [None]
  - PULMONARY EMBOLISM [None]
